FAERS Safety Report 8987727 (Version 2)
Quarter: 2013Q1

REPORT INFORMATION
  Report Type: Spontaneous
  Country: TR (occurrence: TR)
  Receive Date: 20121227
  Receipt Date: 20130104
  Transmission Date: 20140127
  Serious: Yes (Other)
  Sender: FDA-Public Use
  Company Number: TR-TEVA-376966ISR

PATIENT
  Age: 4 Year
  Sex: Female
  Weight: 13 kg

DRUGS (4)
  1. VINCRISTINE [Suspect]
     Indication: ACUTE LYMPHOCYTIC LEUKAEMIA
     Dosage: 1.5 MG/M2 DAILY; 1.5 MG/M2
     Route: 065
  2. DEXAMETHASONE [Suspect]
     Indication: ACUTE LYMPHOCYTIC LEUKAEMIA
     Dosage: 10 MG/M2 DAILY; 10 MG/M2
     Route: 042
  3. DOXORUBICIN [Suspect]
     Indication: ACUTE LYMPHOCYTIC LEUKAEMIA
     Dosage: 30 MG/M2 DAILY; 30 MG/M2
     Route: 065
  4. ASPARAGINASE [Suspect]
     Indication: ACUTE LYMPHOCYTIC LEUKAEMIA
     Dosage: 1000 U/M2
     Route: 065

REACTIONS (1)
  - Status epilepticus [Recovered/Resolved]
